FAERS Safety Report 5465188-2 (Version None)
Quarter: 2007Q3

REPORT INFORMATION
  Report Type: 
  Country: None (occurrence: None)
  Receive Date: 20070924
  Receipt Date: 20070911
  Transmission Date: 20080115
  Serious: Yes (Life-Threatening, Hospitalization)
  Sender: FDA-Public Use
  Company Number: US-JNJFOC-20070601824

PATIENT
  Sex: Female
  Weight: 56.25 kg

DRUGS (4)
  1. ORTHO EVRA [Suspect]
  2. ORTHO EVRA [Suspect]
     Indication: CONTRACEPTION
  3. FLEXERIL [Concomitant]
     Indication: ARTHRALGIA
     Route: 065
  4. TRAMADOL HCL [Concomitant]
     Route: 065

REACTIONS (9)
  - CARDIAC ARREST [None]
  - CHEST PAIN [None]
  - DEEP VEIN THROMBOSIS [None]
  - DYSPHAGIA [None]
  - DYSPNOEA [None]
  - HEADACHE [None]
  - PARAESTHESIA [None]
  - PULMONARY EMBOLISM [None]
  - SNORING [None]
